FAERS Safety Report 23648595 (Version 1)
Quarter: 2024Q1

REPORT INFORMATION
  Report Type: Spontaneous
  Country: PL (occurrence: PL)
  Receive Date: 20240319
  Receipt Date: 20240319
  Transmission Date: 20240410
  Serious: Yes (Other)
  Sender: FDA-Public Use
  Company Number: PL-BAXTER-2024BAX014823

PATIENT
  Age: 41 Year
  Sex: Female

DRUGS (4)
  1. FLUCONAZOLE [Suspect]
     Active Substance: FLUCONAZOLE
     Indication: Candida endophthalmitis
     Dosage: 400 MG/DAY
     Route: 042
  2. MEROPENEM [Suspect]
     Active Substance: MEROPENEM
     Indication: Antibiotic therapy
     Dosage: 2 G EVERY 8 H
     Route: 065
  3. MORPHINE [Concomitant]
     Active Substance: MORPHINE
     Indication: Porphyria acute
     Dosage: INJECTION
     Route: 042
  4. HEMIN [Concomitant]
     Active Substance: HEMIN
     Indication: Porphyria acute
     Dosage: INJECTION
     Route: 042

REACTIONS (2)
  - Acquired porphyria [Unknown]
  - Drug intolerance [Unknown]
